FAERS Safety Report 23137134 (Version 4)
Quarter: 2023Q4

REPORT INFORMATION
  Report Type: Spontaneous
  Country: AU (occurrence: None)
  Receive Date: 20231102
  Receipt Date: 20231208
  Transmission Date: 20240110
  Serious: Yes (Other)
  Sender: FDA-Public Use
  Company Number: AU-ROCHE-3445405

PATIENT
  Sex: Male

DRUGS (1)
  1. VABYSMO [Suspect]
     Active Substance: FARICIMAB\FARICIMAB-SVOA
     Indication: Neovascular age-related macular degeneration
     Route: 065

REACTIONS (7)
  - Vasculitis [Unknown]
  - Optic disc haemorrhage [Unknown]
  - Uveitis [Unknown]
  - Vitritis [Unknown]
  - Diabetic retinopathy [Unknown]
  - Cystoid macular oedema [Unknown]
  - Cataract subcapsular [Unknown]
